FAERS Safety Report 25460020 (Version 1)
Quarter: 2025Q2

REPORT INFORMATION
  Report Type: Spontaneous
  Country: US (occurrence: None)
  Receive Date: 20250618
  Receipt Date: 20250618
  Transmission Date: 20250717
  Serious: Yes (Other)
  Sender: FDA-CTU
  Company Number: None

PATIENT
  Age: 68 Year
  Sex: Female

DRUGS (7)
  1. DUPIXENT [Suspect]
     Active Substance: DUPILUMAB
     Indication: Dermatitis atopic
     Dosage: OTHER FREQUENCY : Q 2WKS;?
     Dates: start: 20250506, end: 20250602
  2. ALENDRONATE [Concomitant]
     Active Substance: ALENDRONATE SODIUM
  3. ASPIRIN [Concomitant]
     Active Substance: ASPIRIN
  4. LOSARTAN [Concomitant]
     Active Substance: LOSARTAN
  5. OMEAGA 3 [Concomitant]
  6. VITAMIN D3 [Concomitant]
     Active Substance: CHOLECALCIFEROL
  7. ROSUVASTATIN [Concomitant]
     Active Substance: ROSUVASTATIN

REACTIONS (5)
  - Headache [None]
  - Oropharyngeal pain [None]
  - Gingival pain [None]
  - Hypertension [None]
  - Mood swings [None]

NARRATIVE: CASE EVENT DATE: 20250602
